FAERS Safety Report 12078505 (Version 2)
Quarter: 2016Q1

REPORT INFORMATION
  Report Type: Spontaneous
  Country: JP (occurrence: JP)
  Receive Date: 20160216
  Receipt Date: 20160322
  Transmission Date: 20160526
  Serious: Yes (Other)
  Sender: FDA-Public Use
  Company Number: JP-ROCHE-1675680

PATIENT
  Age: 77 Year
  Sex: Female

DRUGS (3)
  1. BONVIVA [Suspect]
     Active Substance: IBANDRONATE SODIUM
     Indication: OSTEOPOROSIS
     Route: 042
     Dates: start: 20150630, end: 20151119
  2. MEVALOTIN [Concomitant]
     Active Substance: PRAVASTATIN SODIUM
     Dosage: THE FRACTION DOSE FREQUENCY IS UNCERTAIN. DOSE INTERVAL UNCERTAINTY
     Route: 048
     Dates: start: 20130107
  3. TERIBONE [Concomitant]
     Active Substance: TERIPARATIDE ACETATE
     Route: 058
     Dates: start: 20140201

REACTIONS (1)
  - Osteomyelitis [Unknown]

NARRATIVE: CASE EVENT DATE: 201512
